FAERS Safety Report 4396444-7 (Version None)
Quarter: 2004Q3

REPORT INFORMATION
  Report Type: 
  Country: None (occurrence: None)
  Receive Date: 20040709
  Receipt Date: 20040707
  Transmission Date: 20050211
  Serious: Yes (Death)
  Sender: FDA-Public Use
  Company Number: 402725410/PHRM2004FR02002

PATIENT
  Age: 76 Year
  Sex: Male
  Weight: 80 kg

DRUGS (6)
  1. AK-FLUOR, 10%, AKORN [Suspect]
     Indication: ANGIOGRAM RETINA
     Dosage: 5 ML, XL, IV
     Route: 042
     Dates: start: 20040604
  2. AVLOCARDLY [Concomitant]
  3. SEREDITE,  (SALMETEROL XINAFOATE [Concomitant]
  4. AMAREL    (GLIMEPIRIDE), TABLET [Concomitant]
  5. MYDRIATICUM (TROPICAMIDE) [Concomitant]
  6. NEOSYNEPHRINE (PHENYLEPHRINE) [Concomitant]

REACTIONS (14)
  - AGITATION [None]
  - ANAPHYLACTIC SHOCK [None]
  - BLOOD PRESSURE IMMEASURABLE [None]
  - COMA [None]
  - CYANOSIS [None]
  - DRUG INEFFECTIVE [None]
  - HYPERTENSION [None]
  - INTRACARDIAC THROMBUS [None]
  - LOSS OF CONSCIOUSNESS [None]
  - MALAISE [None]
  - OXYGEN SATURATION DECREASED [None]
  - RESPIRATORY DISORDER [None]
  - SALIVARY HYPERSECRETION [None]
  - VASODILATION PROCEDURE [None]
